FAERS Safety Report 13304650 (Version 1)
Quarter: 2017Q1

REPORT INFORMATION
  Report Type: Spontaneous
  Country: US (occurrence: US)
  Receive Date: 20170308
  Receipt Date: 20170308
  Transmission Date: 20170428
  Serious: No
  Sender: FDA-Public Use
  Company Number: PHEH2017US006649

PATIENT
  Age: 62 Year
  Sex: Male

DRUGS (2)
  1. TAFINLAR [Suspect]
     Active Substance: DABRAFENIB MESYLATE
     Indication: RENAL CELL CARCINOMA
     Dosage: 75 MG, QD
     Route: 048
     Dates: start: 20170301
  2. MEKINIST [Suspect]
     Active Substance: TRAMETINIB DIMETHYL SULFOXIDE
     Indication: RENAL CELL CARCINOMA
     Dosage: 2 MG, QD
     Route: 048
     Dates: start: 20170301

REACTIONS (2)
  - Hyperhidrosis [Unknown]
  - Chills [Unknown]

NARRATIVE: CASE EVENT DATE: 20170301
